FAERS Safety Report 24197534 (Version 1)
Quarter: 2024Q3

REPORT INFORMATION
  Report Type: Spontaneous
  Country: US (occurrence: US)
  Receive Date: 20240811
  Receipt Date: 20240811
  Transmission Date: 20241017
  Serious: No
  Sender: SANOFI AVENTIS
  Company Number: US-SANOFI-02165383

PATIENT
  Age: 61 Year
  Sex: Female

DRUGS (2)
  1. TOUJEO [Suspect]
     Active Substance: INSULIN GLARGINE
     Indication: Type 1 diabetes mellitus
     Dosage: UNK UNK, QD
  2. TOUJEO [Suspect]
     Active Substance: INSULIN GLARGINE
     Dosage: UNK UNK, BID

REACTIONS (2)
  - Blood glucose increased [Unknown]
  - Off label use [Unknown]
